FAERS Safety Report 21824388 (Version 1)
Quarter: 2023Q1

REPORT INFORMATION
  Report Type: Spontaneous
  Country: US (occurrence: None)
  Receive Date: 20230105
  Receipt Date: 20230105
  Transmission Date: 20230417
  Serious: Yes (Death)
  Sender: FDA-Public Use
  Company Number: None

PATIENT
  Sex: Male

DRUGS (1)
  1. ONIVYDE [Suspect]
     Active Substance: IRINOTECAN HYDROCHLORIDE
     Indication: Pancreatic carcinoma
     Dosage: OTHER QUANTITY : 43/10 MG/ML;?OTHER FREQUENCY : 1 EVERY 2 WEEKS;?
     Route: 042
     Dates: start: 20221104

REACTIONS (1)
  - Death [None]
